FAERS Safety Report 13152426 (Version 2)
Quarter: 2017Q3

REPORT INFORMATION
  Report Type: Spontaneous
  Country: JP (occurrence: JP)
  Receive Date: 20170125
  Receipt Date: 20170720
  Transmission Date: 20171127
  Serious: Yes (Death, Other)
  Sender: FDA-Public Use
  Company Number: JP-AMGEN-JPNSP2017012127

PATIENT
  Age: 77 Year
  Sex: Male
  Weight: 57 kg

DRUGS (2)
  1. RANMARK [Suspect]
     Active Substance: DENOSUMAB
     Dosage: UNK 3 TIMES
     Route: 065
     Dates: start: 20140203, end: 20150401
  2. RANMARK [Suspect]
     Active Substance: DENOSUMAB
     Indication: METASTASES TO BONE
     Dosage: 120 MG, Q4WK
     Route: 058
     Dates: start: 20131127, end: 20140225

REACTIONS (1)
  - Osteonecrosis of jaw [Recovered/Resolved]
